FAERS Safety Report 9379881 (Version 1)
Quarter: 2013Q2

REPORT INFORMATION
  Report Type: Spontaneous
  Country: US (occurrence: None)
  Receive Date: 20130627
  Receipt Date: 20130627
  Transmission Date: 20140414
  Serious: Yes (Other)
  Sender: FDA-Public Use
  Company Number: 2013P1009599

PATIENT
  Age: 28 Year
  Sex: Female

DRUGS (2)
  1. DIGOXIN [Suspect]
     Indication: ABORTION INDUCED
     Route: 012
  2. PROSTAGLANDIN E2 VAGINAL INSERT [Concomitant]

REACTIONS (15)
  - Palpitations [None]
  - Malaise [None]
  - Drug administered at inappropriate site [None]
  - Paralysis flaccid [None]
  - Areflexia [None]
  - Respiratory failure [None]
  - Sinus bradycardia [None]
  - Electrocardiogram T wave peaked [None]
  - Hyperkalaemia [None]
  - Toxicity to various agents [None]
  - Muscular weakness [None]
  - Sinus tachycardia [None]
  - Electrocardiogram ST segment depression [None]
  - Toxicity to various agents [None]
  - Exposure during pregnancy [None]
